FAERS Safety Report 10672526 (Version 2)
Quarter: 2015Q1

REPORT INFORMATION
  Report Type: Report from Study
  Country: US (occurrence: US)
  Receive Date: 20141223
  Receipt Date: 20150102
  Transmission Date: 20150720
  Serious: Yes (Other)
  Sender: FDA-Public Use
  Company Number: US-ABBVIE-14K-163-1324168-00

PATIENT
  Sex: Female
  Weight: 61.29 kg

DRUGS (1)
  1. LUPRON DEPOT [Suspect]
     Active Substance: LEUPROLIDE ACETATE
     Indication: ENDOMETRIOSIS
     Route: 065
     Dates: start: 201410

REACTIONS (4)
  - Ovarian cyst ruptured [Unknown]
  - Pelvic pain [Unknown]
  - Night sweats [Unknown]
  - Hot flush [Unknown]
